FAERS Safety Report 19587321 (Version 1)
Quarter: 2021Q3

REPORT INFORMATION
  Report Type: Spontaneous
  Country: US (occurrence: US)
  Receive Date: 20210720
  Receipt Date: 20210720
  Transmission Date: 20211014
  Serious: No
  Sender: FDA-Public Use
  Company Number: None

PATIENT
  Age: 63 Year
  Sex: Male
  Weight: 100.11 kg

DRUGS (2)
  1. METFORMIN (METFORMIN HCL 500MG 24HR TAB,SA) [Suspect]
     Active Substance: METFORMIN HYDROCHLORIDE
     Indication: DIABETES MELLITUS
     Route: 048
     Dates: start: 20171006, end: 20180501
  2. METFORMIN (METFORMIN HCL 500MG 24HR TAB,SA) [Suspect]
     Active Substance: METFORMIN HYDROCHLORIDE
     Indication: OSTEOMYELITIS
     Route: 048
     Dates: start: 20171006, end: 20180501

REACTIONS (4)
  - Drug intolerance [None]
  - Localised infection [None]
  - Gastrointestinal pain [None]
  - Vomiting [None]

NARRATIVE: CASE EVENT DATE: 20180501
